FAERS Safety Report 14214157 (Version 2)
Quarter: 2018Q2

REPORT INFORMATION
  Report Type: Spontaneous
  Country: US (occurrence: US)
  Receive Date: 20171122
  Receipt Date: 20180611
  Transmission Date: 20180711
  Serious: Yes (Other)
  Sender: FDA-Public Use
  Company Number: US-GILEAD-2017-0305824

PATIENT
  Sex: Male

DRUGS (2)
  1. RIBAVIRIN. [Suspect]
     Active Substance: RIBAVIRIN
     Indication: CHRONIC HEPATITIS C
     Dosage: UNK DOSE, 12 WEEKS OF THERAPY
     Route: 048
     Dates: start: 201610, end: 20170114
  2. EPCLUSA [Suspect]
     Active Substance: SOFOSBUVIR\VELPATASVIR
     Indication: CHRONIC HEPATITIS C
     Dosage: UNK DOSE, 12 WEEKS OF THERAPY
     Route: 065
     Dates: start: 201610, end: 20170114

REACTIONS (7)
  - Fatigue [Unknown]
  - Nasopharyngitis [Unknown]
  - Hand fracture [Unknown]
  - Rib fracture [Unknown]
  - Influenza [Unknown]
  - Hepatic cirrhosis [Not Recovered/Not Resolved]
  - Varices oesophageal [Not Recovered/Not Resolved]
